FAERS Safety Report 10296269 (Version 4)
Quarter: 2014Q3

REPORT INFORMATION
  Report Type: Spontaneous
  Country: US (occurrence: US)
  Receive Date: 20140710
  Receipt Date: 20140919
  Transmission Date: 20150326
  Serious: Yes (Other)
  Sender: FDA-Public Use
  Company Number: US-PURDUE-USA-2014-0114625

PATIENT
  Age: 45 Year
  Sex: Female
  Weight: 56.69 kg

DRUGS (5)
  1. WELLBUTRIN [Concomitant]
     Active Substance: BUPROPION HYDROCHLORIDE
     Indication: PRODUCT USED FOR UNKNOWN INDICATION
  2. BUTRANS [Suspect]
     Active Substance: BUPRENORPHINE
     Indication: SURGERY
     Dosage: 10 MCG/HR, WEEKLY
     Route: 062
     Dates: start: 201403
  3. ZOLOFT [Concomitant]
     Active Substance: SERTRALINE HYDROCHLORIDE
     Indication: PRODUCT USED FOR UNKNOWN INDICATION
  4. SYNTHROID [Concomitant]
     Active Substance: LEVOTHYROXINE SODIUM
     Indication: PRODUCT USED FOR UNKNOWN INDICATION
  5. BUTRANS [Suspect]
     Active Substance: BUPRENORPHINE
     Indication: BACK PAIN
     Dosage: 10 MCG/HR, UNK
     Route: 062
     Dates: start: 201403, end: 20140630

REACTIONS (15)
  - Drug effect decreased [Unknown]
  - Application site erythema [Unknown]
  - Application site burn [Not Recovered/Not Resolved]
  - Influenza like illness [Not Recovered/Not Resolved]
  - Application site rash [Unknown]
  - Headache [Not Recovered/Not Resolved]
  - Application site discolouration [Unknown]
  - Pain [Not Recovered/Not Resolved]
  - Application site pruritus [Unknown]
  - Drug withdrawal syndrome [Not Recovered/Not Resolved]
  - Product quality issue [Not Recovered/Not Resolved]
  - Nausea [Not Recovered/Not Resolved]
  - Application site exfoliation [Unknown]
  - Application site scar [Not Recovered/Not Resolved]
  - Product contamination [Not Recovered/Not Resolved]

NARRATIVE: CASE EVENT DATE: 201405
